FAERS Safety Report 16592290 (Version 4)
Quarter: 2019Q3

REPORT INFORMATION
  Report Type: Spontaneous
  Country: JP (occurrence: JP)
  Receive Date: 20190718
  Receipt Date: 20190904
  Transmission Date: 20191004
  Serious: Yes (Death, Other)
  Sender: FDA-Public Use
  Company Number: JP-GILEAD-2019-0418393

PATIENT
  Age: 73 Year
  Sex: Female
  Weight: 33 kg

DRUGS (15)
  1. TERUFIS [Concomitant]
     Indication: HEPATIC ENCEPHALOPATHY
     Dosage: 500 ML
     Route: 041
     Dates: start: 20190620, end: 20190702
  2. SAMSCA [Concomitant]
     Active Substance: TOLVAPTAN
  3. ZOSYN [Concomitant]
     Active Substance: PIPERACILLIN SODIUM\TAZOBACTAM SODIUM
     Indication: PNEUMONIA ASPIRATION
     Dosage: UNK
     Route: 041
     Dates: start: 20190627, end: 20190708
  4. EPCLUSA [Suspect]
     Active Substance: SOFOSBUVIR\VELPATASVIR
     Indication: HEPATITIS C
     Dosage: 1 DOSAGE FORM, QD
     Route: 050
     Dates: start: 20190705, end: 20190708
  5. EPCLUSA [Suspect]
     Active Substance: SOFOSBUVIR\VELPATASVIR
     Indication: HEPATIC CIRRHOSIS
  6. AMINOLEBAN EN [Concomitant]
     Active Substance: UNSPECIFIED INGREDIENT
     Indication: HEPATIC ENCEPHALOPATHY
     Dosage: 1 PACK
     Route: 065
     Dates: start: 20190622, end: 20190708
  7. PIARLE [Concomitant]
     Active Substance: LACTULOSE
  8. TERUFIS [Concomitant]
     Dosage: 200 ML
     Route: 041
     Dates: start: 20190703, end: 20190708
  9. LANSOPRAZOLE. [Concomitant]
     Active Substance: LANSOPRAZOLE
  10. ALDACTONE A [Concomitant]
     Active Substance: SPIRONOLACTONE
  11. L CARTIN [Concomitant]
     Active Substance: LEVOCARNITINE HYDROCHLORIDE
  12. URSO [Concomitant]
     Active Substance: URSODIOL
     Indication: CHRONIC HEPATITIS C
     Dosage: UNK, TID
     Route: 065
     Dates: start: 20190703, end: 20190708
  13. ASPARA POTASSIUM [Concomitant]
     Active Substance: POTASSIUM ASPARTATE
  14. SODIUM CHLORIDE. [Concomitant]
     Active Substance: SODIUM CHLORIDE
  15. URSODEOXYCHOLIC ACID [Concomitant]
     Active Substance: URSODIOL
     Indication: CHRONIC HEPATITIS C
     Dosage: UNK, TID
     Route: 048
     Dates: start: 20190622, end: 20190702

REACTIONS (2)
  - Hepatic failure [Fatal]
  - Off label use [Unknown]

NARRATIVE: CASE EVENT DATE: 20190705
